FAERS Safety Report 8855777 (Version 1)
Quarter: 2012Q4

REPORT INFORMATION
  Report Type: 
  Country: GB (occurrence: GB)
  Receive Date: 20121023
  Receipt Date: 20121023
  Transmission Date: 20130627
  Serious: Yes (Other)
  Sender: FDA-Public Use
  Company Number: PHFR2005GB07852

PATIENT
  Sex: Male

DRUGS (2)
  1. CLOZARIL [Suspect]
     Route: 048
     Dates: start: 20060420
  2. QUETIAPINE [Concomitant]

REACTIONS (3)
  - Mental impairment [Unknown]
  - Sedation [Unknown]
  - Pallor [Unknown]
